FAERS Safety Report 5030183-4 (Version None)
Quarter: 2006Q2

REPORT INFORMATION
  Report Type: 
  Country: None (occurrence: None)
  Receive Date: 20060620
  Receipt Date: 20011227
  Transmission Date: 20061013
  Serious: Yes (Death, Hospitalization, Other)
  Sender: FDA-Public Use
  Company Number: PHBS2001JP13073

PATIENT
  Age: 49 Year
  Sex: Male
  Weight: 64 kg

DRUGS (10)
  1. GASTROM [Concomitant]
     Dates: start: 19980508
  2. GLEEVEC [Suspect]
     Indication: CHRONIC MYELOID LEUKAEMIA
     Dosage: 300 MG, BID
     Route: 048
     Dates: start: 20011210, end: 20011226
  3. GLEEVEC [Suspect]
     Dosage: 200 MG/DAY
     Route: 048
     Dates: start: 20020225, end: 20020308
  4. GLEEVEC [Suspect]
     Dosage: 200 MG/DAY
     Route: 048
     Dates: start: 20020311, end: 20020325
  5. HYDREA [Concomitant]
     Dates: start: 20020116, end: 20020125
  6. HYDREA [Concomitant]
     Dates: start: 20020415
  7. STARASID [Concomitant]
     Dates: start: 20020404, end: 20020415
  8. CYMERIN [Concomitant]
     Dates: start: 20020420, end: 20020420
  9. ENDOXAN [Concomitant]
     Dates: start: 20020503, end: 20020505
  10. PARAPLATIN [Concomitant]
     Dates: start: 20020509, end: 20020511

REACTIONS (18)
  - ATRIAL FIBRILLATION [None]
  - BLOOD CREATININE INCREASED [None]
  - BLOOD UREA INCREASED [None]
  - DERMATITIS EXFOLIATIVE [None]
  - DYSPNOEA EXERTIONAL [None]
  - ECZEMA [None]
  - ERYTHEMA [None]
  - HYPERSENSITIVITY [None]
  - HYPOXIA [None]
  - INTERSTITIAL LUNG DISEASE [None]
  - LUNG INFILTRATION [None]
  - MALIGNANT NEOPLASM PROGRESSION [None]
  - PALPITATIONS [None]
  - PNEUMONIA [None]
  - PULMONARY FIBROSIS [None]
  - PYREXIA [None]
  - RASH [None]
  - SKIN EXFOLIATION [None]
